FAERS Safety Report 24869679 (Version 3)
Quarter: 2025Q1

REPORT INFORMATION
  Report Type: Other
  Country: US (occurrence: US)
  Receive Date: 20250121
  Receipt Date: 20250205
  Transmission Date: 20250409
  Serious: Yes (Hospitalization, Other)
  Sender: TRAVERE THERAPEUTICS
  Company Number: US-TRAVERE-2025TVT00017

PATIENT
  Age: 77 Year
  Sex: Male

DRUGS (2)
  1. FILSPARI [Suspect]
     Active Substance: SPARSENTAN
     Indication: IgA nephropathy
     Route: 048
     Dates: start: 20241206
  2. FILSPARI [Suspect]
     Active Substance: SPARSENTAN
     Dosage: CUT THE PILLS OF 200MG IN HALF AND ONLY TOOK HALF A TABLET (100MG) DAILY
     Route: 048

REACTIONS (7)
  - Hypotension [Recovering/Resolving]
  - Hospitalisation [Unknown]
  - Glomerular filtration rate decreased [Unknown]
  - Wrong technique in product usage process [Unknown]
  - Incorrect dose administered [Unknown]
  - Adverse event [Unknown]
  - Fatigue [Unknown]

NARRATIVE: CASE EVENT DATE: 20250120
